FAERS Safety Report 19986276 (Version 1)
Quarter: 2021Q4

REPORT INFORMATION
  Report Type: Spontaneous
  Country: ID (occurrence: ID)
  Receive Date: 20211022
  Receipt Date: 20211022
  Transmission Date: 20220303
  Serious: Yes (Hospitalization, Other)
  Sender: FDA-Public Use
  Company Number: ID-SA-SAC20211019000262

PATIENT
  Age: 64 Year
  Sex: Male
  Weight: 66 kg

DRUGS (10)
  1. LANTUS [Suspect]
     Active Substance: INSULIN GLARGINE
     Indication: Diabetes mellitus
     Dosage: 10 IU, QD
     Route: 065
     Dates: start: 2020
  2. LANTUS [Suspect]
     Active Substance: INSULIN GLARGINE
     Dosage: 14 IU, QD
     Route: 065
     Dates: start: 20210905, end: 20210908
  3. LANTUS [Suspect]
     Active Substance: INSULIN GLARGINE
     Dosage: 8 UNK
     Route: 065
     Dates: start: 20210909
  4. APIDRA [Suspect]
     Active Substance: INSULIN GLULISINE
     Dosage: 6 IU, Q8H
     Route: 058
     Dates: start: 2020
  5. APIDRA [Suspect]
     Active Substance: INSULIN GLULISINE
     Dosage: 8 IU, Q8H
     Route: 058
     Dates: start: 20210901, end: 20210906
  6. APIDRA [Suspect]
     Active Substance: INSULIN GLULISINE
     Dosage: 4 IU, Q8H
     Route: 058
     Dates: start: 20210907
  7. METFORMIN [Concomitant]
     Active Substance: METFORMIN HYDROCHLORIDE
     Dosage: UNK
     Route: 065
  8. GLIMEPIRIDE [Concomitant]
     Active Substance: GLIMEPIRIDE
     Dosage: UNK
     Route: 065
  9. AMLODIPINE [Concomitant]
     Active Substance: AMLODIPINE BESYLATE
     Dosage: 5 MG, QD
     Route: 065
  10. SIMVASTATIN [Concomitant]
     Active Substance: SIMVASTATIN
     Dosage: 20 MG, QD
     Route: 065

REACTIONS (4)
  - Asthenia [Recovered/Resolved]
  - Peripheral swelling [Unknown]
  - Hypoglycaemia [Recovered/Resolved]
  - Eating disorder [Recovered/Resolved]

NARRATIVE: CASE EVENT DATE: 20210828
